FAERS Safety Report 4775269-4 (Version None)
Quarter: 2005Q3

REPORT INFORMATION
  Report Type: 
  Country: None (occurrence: None)
  Receive Date: 20050921
  Receipt Date: 20050921
  Transmission Date: 20060218
  Serious: Yes (Hospitalization)
  Sender: FDA-Public Use
  Company Number: None

PATIENT
  Age: 58 Year
  Sex: Female
  Weight: 38.1022 kg

DRUGS (4)
  1. GEMCITABINE [Suspect]
     Indication: TONGUE CANCER METASTATIC
     Dosage: 1000 MG/M2
     Dates: start: 20050907
  2. GEMCITABINE [Suspect]
     Indication: TONGUE CANCER METASTATIC
     Dosage: 1000 MG/M2
     Dates: start: 20050914
  3. DOXORUBICIN HCL [Suspect]
     Indication: TONGUE CANCER METASTATIC
     Dosage: 25 MG/M2
     Dates: start: 20050907
  4. DOXORUBICIN HCL [Suspect]
     Indication: TONGUE CANCER METASTATIC
     Dosage: 25 MG/M2
     Dates: start: 20050914

REACTIONS (2)
  - COUGH [None]
  - FEBRILE NEUTROPENIA [None]
